FAERS Safety Report 15861578 (Version 1)
Quarter: 2019Q1

REPORT INFORMATION
  Report Type: Spontaneous
  Country: US (occurrence: US)
  Receive Date: 20190121
  Receipt Date: 20190121
  Transmission Date: 20190417
  Serious: No
  Sender: FDA-Public Use
  Company Number: None

PATIENT

DRUGS (1)
  1. TALTZ [Suspect]
     Active Substance: IXEKIZUMAB
     Dates: start: 201807

REACTIONS (2)
  - Pruritus [None]
  - Arthralgia [None]

NARRATIVE: CASE EVENT DATE: 20190107
